FAERS Safety Report 5764126-2 (Version None)
Quarter: 2008Q2

REPORT INFORMATION
  Report Type: 
  Country: None (occurrence: None)
  Receive Date: 20080609
  Receipt Date: 20080325
  Transmission Date: 20081010
  Serious: No
  Sender: FDA-Public Use
  Company Number: 002#2#2008-00161

PATIENT
  Age: 59 Year
  Sex: Female

DRUGS (1)
  1. NEUPRO [Suspect]
     Indication: PARKINSON'S DISEASE
     Dosage: 4MG/24H, 1 I N 1 D, TRANSDERMAL; 8MG/24H, 1 IN 1 D, TRANSDERMAL
     Route: 062
     Dates: start: 20071217

REACTIONS (2)
  - OVERDOSE [None]
  - PARKINSONISM [None]
